FAERS Safety Report 6329556-9 (Version None)
Quarter: 2009Q3

REPORT INFORMATION
  Report Type: 
  Country: None (occurrence: None)
  Receive Date: 20090825
  Receipt Date: 20090825
  Transmission Date: 20100115
  Serious: Yes (Other)
  Sender: FDA-Public Use
  Company Number: None

PATIENT
  Age: 51 Year
  Sex: Male
  Weight: 92.0802 kg

DRUGS (11)
  1. VANCOMYCIN [Suspect]
     Indication: STAPHYLOCOCCAL INFECTION
     Dosage: 750 MG Q DIALYSIS IV
     Route: 042
     Dates: start: 20090525, end: 20090611
  2. PHOSLO [Concomitant]
  3. AGGRENOX [Concomitant]
  4. LABETALOL HCL [Concomitant]
  5. PRAVASTATIN [Concomitant]
  6. GABAPENTIN [Concomitant]
  7. AMLODIPINE [Concomitant]
  8. INSULIN [Concomitant]
  9. ZOLOFT [Concomitant]
  10. EPOGEN [Concomitant]
  11. ZEMPLAR [Concomitant]

REACTIONS (4)
  - DERMATITIS BULLOUS [None]
  - DERMATITIS CONTACT [None]
  - HERPES ZOSTER [None]
  - INTERVERTEBRAL DISCITIS [None]
